FAERS Safety Report 8829325 (Version 1)
Quarter: 2012Q4

REPORT INFORMATION
  Report Type: Report from Study
  Country: BR (occurrence: BR)
  Receive Date: 20121008
  Receipt Date: 20121008
  Transmission Date: 20130627
  Serious: Yes (Hospitalization, Other)
  Sender: FDA-Public Use
  Company Number: BR-ROCHE-1137516

PATIENT
  Sex: Male
  Weight: 57 kg

DRUGS (2)
  1. MABTHERA [Suspect]
     Indication: RHEUMATOID ARTHRITIS
     Route: 042
     Dates: start: 201202
  2. INSULIN [Concomitant]

REACTIONS (2)
  - Accident [Unknown]
  - Femur fracture [Recovering/Resolving]
